FAERS Safety Report 13388386 (Version 1)
Quarter: 2017Q1

REPORT INFORMATION
  Report Type: Report from Study
  Country: None (occurrence: US)
  Receive Date: 20170330
  Receipt Date: 20170330
  Transmission Date: 20170429
  Serious: Yes (Other)
  Sender: FDA-Public Use
  Company Number: US-ABBVIE-17K-163-1918781-00

PATIENT
  Age: 59 Year
  Sex: Female

DRUGS (2)
  1. HUMIRA [Suspect]
     Active Substance: ADALIMUMAB
     Indication: CROHN^S DISEASE
     Route: 058
     Dates: end: 201701
  2. HUMIRA [Suspect]
     Active Substance: ADALIMUMAB
     Route: 058
     Dates: start: 201702

REACTIONS (5)
  - Arthralgia [Not Recovered/Not Resolved]
  - Colostomy [Recovering/Resolving]
  - Arthralgia [Recovered/Resolved]
  - Hernia [Recovering/Resolving]
  - Procedural complication [Recovering/Resolving]

NARRATIVE: CASE EVENT DATE: 2017
